FAERS Safety Report 21294652 (Version 2)
Quarter: 2022Q3

REPORT INFORMATION
  Report Type: Spontaneous
  Country: GB (occurrence: GB)
  Receive Date: 20220905
  Receipt Date: 20220908
  Transmission Date: 20221027
  Serious: No
  Sender: FDA-Public Use
  Company Number: GB-UCBSA-2022049889

PATIENT

DRUGS (1)
  1. NEUPRO [Suspect]
     Active Substance: ROTIGOTINE
     Indication: Product used for unknown indication
     Dosage: UNK
     Route: 062
     Dates: start: 20220401

REACTIONS (3)
  - Dermatitis contact [Unknown]
  - Therapeutic product effect incomplete [Unknown]
  - Product adhesion issue [Unknown]
